FAERS Safety Report 8609206 (Version 6)
Quarter: 2013Q2

REPORT INFORMATION
  Report Type: Spontaneous
  Country: US (occurrence: US)
  Receive Date: 20120611
  Receipt Date: 20130517
  Transmission Date: 20140414
  Serious: Yes (Life-Threatening, Hospitalization, Other)
  Sender: FDA-Public Use
  Company Number: US-ASTRAZENECA-2010SE48473

PATIENT
  Age: 72 Year
  Sex: Female

DRUGS (5)
  1. NEXIUM [Suspect]
     Route: 048
  2. NEXIUM [Suspect]
     Dosage: TWICEA DAY
     Route: 048
  3. PRILOSEC [Suspect]
     Dosage: TWICE A DAY
     Route: 048
  4. PRILOSEC OTC [Suspect]
     Route: 048
  5. CRESTOR [Suspect]
     Route: 048

REACTIONS (29)
  - Apparent death [Unknown]
  - Oesophageal haemorrhage [Unknown]
  - Lower limb fracture [Unknown]
  - Arrhythmia [Unknown]
  - Upper respiratory tract infection [Unknown]
  - Kidney infection [Unknown]
  - Sepsis [Unknown]
  - Hip deformity [Unknown]
  - Limb discomfort [Unknown]
  - Haemorrhage [Unknown]
  - Cardiac discomfort [Unknown]
  - Injury [Unknown]
  - Road traffic accident [Unknown]
  - Fall [Unknown]
  - Blood magnesium decreased [Unknown]
  - Musculoskeletal stiffness [Unknown]
  - Gastrointestinal viral infection [Unknown]
  - Renal disorder [Unknown]
  - Muscle disorder [Unknown]
  - Polymyalgia rheumatica [Unknown]
  - Influenza [Unknown]
  - Blood glucose decreased [Unknown]
  - Diabetes mellitus [Unknown]
  - Visual impairment [Unknown]
  - Adverse event [Unknown]
  - Malaise [Unknown]
  - Drug effect decreased [Unknown]
  - Off label use [Unknown]
  - Drug dose omission [Unknown]
